FAERS Safety Report 6541800-1 (Version None)
Quarter: 2010Q1

REPORT INFORMATION
  Report Type: 
  Country: None (occurrence: None)
  Receive Date: 20100119
  Receipt Date: 20100112
  Transmission Date: 20100710
  Serious: Yes (Hospitalization, Other)
  Sender: FDA-Public Use
  Company Number: PHEH2009US14324

PATIENT
  Sex: Male
  Weight: 70 kg

DRUGS (6)
  1. EXJADE [Suspect]
     Indication: THALASSAEMIA BETA
     Dosage: 1400 MG DAILY
     Route: 048
     Dates: start: 20090603, end: 20090605
  2. EXJADE [Suspect]
     Indication: HAEMOCHROMATOSIS
  3. BOSENTAN [Concomitant]
  4. REVATIO [Concomitant]
  5. REMODULIN [Concomitant]
     Dosage: UNK, UNK
  6. PROCRIT                            /00909301/ [Concomitant]
     Dosage: UNK, UNK

REACTIONS (10)
  - ABDOMINAL TENDERNESS [None]
  - BLOOD BILIRUBIN INCREASED [None]
  - BLOOD PRESSURE SYSTOLIC INCREASED [None]
  - BLOOD URINE PRESENT [None]
  - DIARRHOEA [None]
  - DYSPNOEA [None]
  - HEART RATE INCREASED [None]
  - NAUSEA [None]
  - PYREXIA [None]
  - WHITE BLOOD CELL COUNT ABNORMAL [None]
